FAERS Safety Report 26055964 (Version 1)
Quarter: 2025Q4

REPORT INFORMATION
  Report Type: Spontaneous
  Country: US (occurrence: US)
  Receive Date: 20251118
  Receipt Date: 20251118
  Transmission Date: 20260118
  Serious: No
  Sender: RECKITT BENCKISER
  Company Number: US-PROD-AS2-212756134-20-25-USA-RB-0001249

PATIENT
  Age: 5 Year
  Sex: Male
  Weight: 17.236 kg

DRUGS (1)
  1. DELSYM [Suspect]
     Active Substance: DEXTROMETHORPHAN
     Indication: Cough
     Dosage: 1 DF, BID
     Route: 048
     Dates: start: 20250101, end: 20250120

REACTIONS (1)
  - Drug ineffective [Recovered/Resolved]
